FAERS Safety Report 5235486-6 (Version None)
Quarter: 2007Q1

REPORT INFORMATION
  Report Type: 
  Country: None (occurrence: None)
  Receive Date: 20070208
  Receipt Date: 20070208
  Transmission Date: 20070707
  Serious: Yes (Life-Threatening, Hospitalization)
  Sender: FDA-Public Use
  Company Number: None

PATIENT
  Age: 48 Year
  Sex: Female
  Weight: 78.2 kg

DRUGS (4)
  1. ZYPREXA [Suspect]
     Indication: SCHIZOPHRENIA, PARANOID TYPE
     Dosage: 20 MG  QHS  PO
     Route: 048
  2. DEPAKOTE [Concomitant]
  3. COGENTIN [Concomitant]
  4. PROLIXIN [Concomitant]

REACTIONS (5)
  - BLOOD GLUCOSE INCREASED [None]
  - DIABETIC KETOACIDOSIS [None]
  - GLYCOSYLATED HAEMOGLOBIN INCREASED [None]
  - HYPERPARATHYROIDISM PRIMARY [None]
  - LABORATORY TEST ABNORMAL [None]
